FAERS Safety Report 9847487 (Version 1)
Quarter: 2014Q1

REPORT INFORMATION
  Report Type: Report from Study
  Country: US (occurrence: US)
  Receive Date: 20140127
  Receipt Date: 20140127
  Transmission Date: 20141002
  Serious: Yes (Other)
  Sender: FDA-Public Use
  Company Number: US-ROCHE-1339292

PATIENT
  Sex: Female
  Weight: 22.3 kg

DRUGS (2)
  1. NUTROPIN [Suspect]
     Indication: BODY HEIGHT BELOW NORMAL
     Route: 058
     Dates: end: 201304
  2. RITALIN [Concomitant]
     Route: 048

REACTIONS (3)
  - Pain in extremity [Unknown]
  - Abdominal pain [Unknown]
  - Headache [Unknown]
